FAERS Safety Report 13454881 (Version 1)
Quarter: 2017Q2

REPORT INFORMATION
  Report Type: Spontaneous
  Country: US (occurrence: US)
  Receive Date: 20170418
  Receipt Date: 20170418
  Transmission Date: 20170830
  Serious: No
  Sender: FDA-Public Use
  Company Number: US-PFIZER INC-2017159433

PATIENT
  Sex: Female

DRUGS (1)
  1. XELJANZ [Suspect]
     Active Substance: TOFACITINIB CITRATE
     Dosage: 5 MG, UNK

REACTIONS (20)
  - Contusion [Unknown]
  - Photosensitivity reaction [Unknown]
  - Joint stiffness [Unknown]
  - Drug ineffective [Unknown]
  - Muscular weakness [Unknown]
  - Pain in extremity [Unknown]
  - Cough [Unknown]
  - Joint range of motion decreased [Unknown]
  - Arthralgia [Unknown]
  - Arthropathy [Unknown]
  - Musculoskeletal stiffness [Unknown]
  - Blood creatine phosphokinase increased [Unknown]
  - Fatigue [Unknown]
  - Rhinorrhoea [Unknown]
  - Irritability [Unknown]
  - Joint swelling [Unknown]
  - Back pain [Unknown]
  - Nocturia [Unknown]
  - Bursitis [Unknown]
  - Skin discolouration [Unknown]
